FAERS Safety Report 17418817 (Version 1)
Quarter: 2020Q1

REPORT INFORMATION
  Report Type: Spontaneous
  Country: US (occurrence: US)
  Receive Date: 20200214
  Receipt Date: 20200214
  Transmission Date: 20200409
  Serious: No
  Sender: FDA-Public Use
  Company Number: US-CELGENEUS-USA-20200202292

PATIENT
  Sex: Male

DRUGS (8)
  1. CALCINEURIN INHIBITORS [Concomitant]
     Active Substance: UNSPECIFIED INGREDIENT
     Indication: SEBORRHOEIC DERMATITIS
     Route: 065
  2. SODIUM SULFACETAMIDE-SULFUR [Concomitant]
     Indication: SEBORRHOEIC DERMATITIS
     Route: 065
  3. APREMILAST [Suspect]
     Active Substance: APREMILAST
     Indication: SEBORRHOEIC DERMATITIS
     Dosage: 60 MILLIGRAM
     Route: 048
  4. APREMILAST [Suspect]
     Active Substance: APREMILAST
     Indication: OFF LABEL USE
  5. CRISABOROLE [Concomitant]
     Active Substance: CRISABOROLE
     Indication: SEBORRHOEIC DERMATITIS
     Route: 061
  6. COAL TAR. [Concomitant]
     Active Substance: COAL TAR
     Indication: SEBORRHOEIC DERMATITIS
     Route: 061
  7. KETOCONAZOLE. [Concomitant]
     Active Substance: KETOCONAZOLE
     Indication: SEBORRHOEIC DERMATITIS
     Route: 061
  8. VITAMIN D ANALOGS [Concomitant]
     Indication: SEBORRHOEIC DERMATITIS
     Route: 065

REACTIONS (1)
  - Nausea [Unknown]
